FAERS Safety Report 20331218 (Version 1)
Quarter: 2022Q1

REPORT INFORMATION
  Report Type: Spontaneous
  Country: CN (occurrence: CN)
  Receive Date: 20220113
  Receipt Date: 20220113
  Transmission Date: 20220423
  Serious: Yes (Other)
  Sender: FDA-Public Use
  Company Number: CN-BAXTER-2022BAX000568

PATIENT
  Age: 70 Year
  Sex: Female
  Weight: 63 kg

DRUGS (1)
  1. MANNITOL [Suspect]
     Active Substance: MANNITOL
     Indication: Intraocular pressure increased
     Route: 041
     Dates: start: 20211216, end: 20211216

REACTIONS (3)
  - Arrhythmia [Recovering/Resolving]
  - Abdominal pain [Recovering/Resolving]
  - Palpitations [Recovering/Resolving]

NARRATIVE: CASE EVENT DATE: 20211216
